FAERS Safety Report 4561561-5 (Version None)
Quarter: 2005Q1

REPORT INFORMATION
  Report Type: 
  Country: None (occurrence: None)
  Receive Date: 20050121
  Receipt Date: 20050105
  Transmission Date: 20050727
  Serious: Yes (Other)
  Sender: FDA-Public Use
  Company Number: US_0501109897

PATIENT
  Sex: Female

DRUGS (3)
  1. EVISTA [Suspect]
     Dates: start: 20011001
  2. ACTONEL [Concomitant]
  3. PREMARIN [Concomitant]

REACTIONS (2)
  - DRUG INEFFECTIVE [None]
  - HIP FRACTURE [None]
